FAERS Safety Report 8508983-5 (Version None)
Quarter: 2012Q3

REPORT INFORMATION
  Report Type: 
  Country: None (occurrence: None)
  Receive Date: 20120702
  Receipt Date: 20100607
  Transmission Date: 20120928
  Serious: Yes (Hospitalization, Other)
  Sender: FDA-Public Use
  Company Number: WAES 1206USA04106

PATIENT
  Age: 62 Year
  Sex: Male

DRUGS (10)
  1. ACYCLOVIR [Concomitant]
  2. FUROSEMIDE [Concomitant]
  3. LANSOPRAZOLE [Concomitant]
  4. DEXAMETHASONE [Suspect]
     Indication: MULTIPLE MYELOMA
     Dosage: 180 MG, PO
     Route: 048
     Dates: start: 20100105, end: 20100226
  5. FENTANYL [Concomitant]
  6. FLUCONAZOLE [Concomitant]
  7. PIOGLITAZONE HYDROCHLORIDE [Concomitant]
  8. GLIMEPIRIDE [Concomitant]
  9. METFORMIN HYDROCHLORIDE [Concomitant]
  10. VELCADE [Suspect]
     Indication: MULTIPLE MYELOMA
     Dosage: 2.5 MG, IV
     Route: 042
     Dates: start: 20100105

REACTIONS (4)
  - PULMONARY EMBOLISM [None]
  - LOWER RESPIRATORY TRACT INFECTION [None]
  - DIARRHOEA [None]
  - ELECTROLYTE IMBALANCE [None]
